FAERS Safety Report 5413865-1 (Version None)
Quarter: 2007Q3

REPORT INFORMATION
  Report Type: 
  Country: None (occurrence: None)
  Receive Date: 20070814
  Receipt Date: 20070611
  Transmission Date: 20080115
  Serious: No
  Sender: FDA-Public Use
  Company Number: US-BRISTOL-MYERS SQUIBB COMPANY-13809645

PATIENT
  Sex: Male
  Weight: 34 kg

DRUGS (5)
  1. REYATAZ [Suspect]
     Indication: HIV INFECTION
     Dates: start: 20050101
  2. RITONAVIR [Suspect]
  3. BACTRIM [Concomitant]
  4. LOVENOX [Concomitant]
  5. EPIVIR [Concomitant]

REACTIONS (1)
  - VIRAL LOAD INCREASED [None]
